FAERS Safety Report 5340003-6 (Version None)
Quarter: 2007Q2

REPORT INFORMATION
  Report Type: 
  Country: None (occurrence: None)
  Receive Date: 20070531
  Receipt Date: 20070525
  Transmission Date: 20071010
  Serious: Yes (Hospitalization)
  Sender: FDA-Public Use
  Company Number: FR-BRISTOL-MYERS SQUIBB COMPANY-13795166

PATIENT
  Age: 76 Year
  Sex: Male

DRUGS (6)
  1. GLUCOPHAGE [Suspect]
     Indication: DIABETES MELLITUS
     Route: 048
  2. HEMI-DAONIL [Interacting]
     Route: 048
  3. COZAAR [Concomitant]
  4. KARDEGIC [Concomitant]
  5. ALLOPURINOL [Concomitant]
  6. SOPROL [Concomitant]

REACTIONS (3)
  - DRUG INTERACTION [None]
  - FALL [None]
  - HYPOGLYCAEMIA [None]
